FAERS Safety Report 25502129 (Version 1)
Quarter: 2025Q3

REPORT INFORMATION
  Report Type: Spontaneous
  Country: GB (occurrence: GB)
  Receive Date: 20250702
  Receipt Date: 20250702
  Transmission Date: 20251020
  Serious: Yes (Other)
  Sender: ASTELLAS
  Company Number: GB-MHRA-MED-202304011636316980-QFNHR

PATIENT
  Age: 57 Year
  Sex: Male
  Weight: 70 kg

DRUGS (1)
  1. SOLIFENACIN [Suspect]
     Active Substance: SOLIFENACIN
     Indication: Micturition urgency
     Dosage: 10 MG, ONCE DAILY
     Route: 065
     Dates: start: 20230227, end: 20230301

REACTIONS (3)
  - Gastrooesophageal reflux disease [Recovered/Resolved with Sequelae]
  - Chest pain [Unknown]
  - Influenza like illness [Unknown]

NARRATIVE: CASE EVENT DATE: 20230227
